FAERS Safety Report 8739320 (Version 2)
Quarter: 2012Q4

REPORT INFORMATION
  Report Type: 
  Country: DE (occurrence: DE)
  Receive Date: 20120823
  Receipt Date: 20120918
  Transmission Date: 20130627
  Serious: Yes (Other)
  Sender: FDA-Public Use
  Company Number: DE-JNJFOC-20120806680

PATIENT
  Sex: Female
  Weight: 65 kg

DRUGS (3)
  1. RISPERDAL [Suspect]
     Indication: PRODUCT USED FOR UNKNOWN INDICATION
     Dosage: 1 or 2 mg daily
     Route: 048
     Dates: start: 201204
  2. METOPROLOL SUCCINATE [Concomitant]
     Route: 048
     Dates: start: 201204
  3. AMLODIPINE [Concomitant]
     Route: 048
     Dates: start: 201204

REACTIONS (2)
  - Gastritis [Not Recovered/Not Resolved]
  - Hallucination [Not Recovered/Not Resolved]
